FAERS Safety Report 16499576 (Version 2)
Quarter: 2019Q3

REPORT INFORMATION
  Report Type: Spontaneous
  Country: US (occurrence: US)
  Receive Date: 20190701
  Receipt Date: 20190719
  Transmission Date: 20191004
  Serious: No
  Sender: FDA-Public Use
  Company Number: US-ASTRAZENECA-2019SE86806

PATIENT
  Sex: Female
  Weight: 68 kg

DRUGS (1)
  1. PULMICORT FLEXHALER [Suspect]
     Active Substance: BUDESONIDE
     Indication: BRONCHIAL HYPERREACTIVITY
     Route: 055
     Dates: start: 20161213

REACTIONS (5)
  - Hypertension [Unknown]
  - Device defective [Unknown]
  - Cough [Unknown]
  - Product use in unapproved indication [Unknown]
  - Off label use [Unknown]
